FAERS Safety Report 14683062 (Version 1)
Quarter: 2018Q1

REPORT INFORMATION
  Report Type: Spontaneous
  Country: US (occurrence: US)
  Receive Date: 20180327
  Receipt Date: 20180327
  Transmission Date: 20180509
  Serious: No
  Sender: FDA-Public Use
  Company Number: US-TEVA-2018-US-875837

PATIENT
  Age: 32 Year
  Sex: Female
  Weight: 72.64 kg

DRUGS (1)
  1. EQ BACITRACIN ZINC OINTMENT USP, 1OZ [Suspect]
     Active Substance: BACITRACIN ZINC

REACTIONS (1)
  - Skin infection [Unknown]

NARRATIVE: CASE EVENT DATE: 20180319
